FAERS Safety Report 17745496 (Version 1)
Quarter: 2020Q2

REPORT INFORMATION
  Report Type: Report from Study
  Country: US (occurrence: US)
  Receive Date: 20200505
  Receipt Date: 20200505
  Transmission Date: 20200714
  Serious: Yes (Hospitalization)
  Sender: FDA-Public Use
  Company Number: NVSC2020US118666

PATIENT
  Age: 64 Year
  Sex: Male

DRUGS (1)
  1. MYFORTIC [Suspect]
     Active Substance: MYCOPHENOLATE SODIUM
     Indication: PRODUCT USED FOR UNKNOWN INDICATION
     Dosage: 2 DF, BID
     Route: 048
     Dates: start: 20200408

REACTIONS (1)
  - Coronavirus infection [Unknown]

NARRATIVE: CASE EVENT DATE: 20200408
